FAERS Safety Report 24641278 (Version 1)
Quarter: 2024Q4

REPORT INFORMATION
  Report Type: Spontaneous
  Country: CA (occurrence: CA)
  Receive Date: 20241120
  Receipt Date: 20241120
  Transmission Date: 20250114
  Serious: Yes (Life-Threatening, Hospitalization, Other)
  Sender: EXELIXIS
  Company Number: CA-IPSEN Group, Research and Development-2024-23097

PATIENT
  Age: 37 Year
  Sex: Male
  Weight: 137 kg

DRUGS (29)
  1. CABOMETYX [Suspect]
     Active Substance: CABOZANTINIB S-MALATE
     Indication: Ewing^s sarcoma
     Dosage: 40 MG, QD
     Route: 048
  2. CABOMETYX [Suspect]
     Active Substance: CABOZANTINIB S-MALATE
     Indication: Off label use
  3. APIXABAN [Suspect]
     Active Substance: APIXABAN
     Indication: Thrombophlebitis
     Dosage: 5 MG, QOD (2 EVERY 1 DAYS)
     Route: 048
  4. ACETAMINOPHEN [Concomitant]
     Active Substance: ACETAMINOPHEN
     Dosage: UNK
  5. ALLOPURINOL [Concomitant]
     Active Substance: ALLOPURINOL
     Dosage: UNK
  6. AMITRIPTYLINE [Concomitant]
     Active Substance: AMITRIPTYLINE
     Dosage: UNK
  7. ATORVASTATIN [Concomitant]
     Active Substance: ATORVASTATIN
     Dosage: UNK
     Route: 065
  8. BISACODYL [Concomitant]
     Active Substance: BISACODYL
     Dosage: UNK
     Route: 065
  9. BISOPROLOL [Concomitant]
     Active Substance: BISOPROLOL
     Dosage: UNK
     Route: 065
  10. BUPROPION [Concomitant]
     Active Substance: BUPROPION
     Dosage: UNK
     Route: 065
  11. CALCIUM CARBONATE [Concomitant]
     Active Substance: CALCIUM CARBONATE
  12. VITAMINS [Concomitant]
     Active Substance: VITAMINS
     Dosage: UNK
     Route: 065
  13. FUROSEMIDE [Concomitant]
     Active Substance: FUROSEMIDE
     Dosage: UNK
     Route: 065
  14. HYDROMORPHONE [Concomitant]
     Active Substance: HYDROMORPHONE
     Dosage: UNK
  15. FERROUS SULFATE ANHYDROUS [Concomitant]
     Active Substance: FERROUS SULFATE ANHYDROUS
     Dosage: UNK
  16. LOPERAMIDE [Concomitant]
     Active Substance: LOPERAMIDE
     Dosage: UNK
  17. MAGNESIUM [Concomitant]
     Active Substance: MAGNESIUM
  18. METFORMIN [Concomitant]
     Active Substance: METFORMIN HYDROCHLORIDE
     Dosage: UNK
  19. MIRTAZAPINE [Concomitant]
     Active Substance: MIRTAZAPINE
     Dosage: UNK
  20. MOMETASONE FUROATE [Concomitant]
     Active Substance: MOMETASONE FUROATE
     Dosage: UNK
  21. NABILONE [Concomitant]
     Active Substance: NABILONE
     Dosage: UNK
  22. PREDNISONE [Concomitant]
     Active Substance: PREDNISONE
  23. PREGABALIN [Concomitant]
     Active Substance: PREGABALIN
     Dosage: UNK
  24. PROCHLORPERAZINE [Concomitant]
     Active Substance: PROCHLORPERAZINE
     Dosage: UNK
  25. MYCOPHENOLATE SODIUM [Concomitant]
     Active Substance: MYCOPHENOLATE SODIUM
     Dosage: UNK
  26. SENNOSIDES [Concomitant]
     Active Substance: SENNOSIDES
     Dosage: UNK
  27. TACROLIMUS [Concomitant]
     Active Substance: TACROLIMUS
     Dosage: UNK
  28. PANTOPRAZOLE [Concomitant]
     Active Substance: PANTOPRAZOLE
     Dosage: UNK
  29. POLYETHYLENE GLYCOL [Concomitant]
     Active Substance: POLYETHYLENE GLYCOL
     Dosage: UNK

REACTIONS (12)
  - General physical health deterioration [Not Recovered/Not Resolved]
  - Liver injury [Not Recovered/Not Resolved]
  - Nervous system disorder [Not Recovered/Not Resolved]
  - Nystagmus [Not Recovered/Not Resolved]
  - Somnolence [Not Recovered/Not Resolved]
  - Strabismus [Not Recovered/Not Resolved]
  - Visual impairment [Not Recovered/Not Resolved]
  - Decreased appetite [Not Recovered/Not Resolved]
  - Melaena [Not Recovered/Not Resolved]
  - Haemorrhage [Not Recovered/Not Resolved]
  - Transfusion [Unknown]
  - Off label use [Unknown]
